FAERS Safety Report 11133537 (Version 1)
Quarter: 2015Q2

REPORT INFORMATION
  Report Type: Spontaneous
  Country: US (occurrence: US)
  Receive Date: 20150523
  Receipt Date: 20150523
  Transmission Date: 20150821
  Serious: No
  Sender: FDA-Public Use
  Company Number: US-CELGENEUS-USA-2015041538

PATIENT
  Sex: Female

DRUGS (1)
  1. OTEZLA [Suspect]
     Active Substance: APREMILAST
     Indication: PSORIATIC ARTHROPATHY
     Dosage: 10, 20, 30MG
     Route: 048
     Dates: start: 20150324, end: 20150407

REACTIONS (3)
  - Pruritus [Unknown]
  - Psoriasis [Unknown]
  - Malaise [Unknown]

NARRATIVE: CASE EVENT DATE: 2015
